FAERS Safety Report 4332713-4 (Version None)
Quarter: 2004Q1

REPORT INFORMATION
  Report Type: 
  Country: None (occurrence: None)
  Receive Date: 20040330
  Receipt Date: 20040317
  Transmission Date: 20041129
  Serious: No
  Sender: FDA-Public Use
  Company Number: 2004AP01739

PATIENT
  Age: 35 Year
  Sex: Male
  Weight: 64 kg

DRUGS (2)
  1. ANAPEINE [Suspect]
     Indication: ANAESTHESIA
     Dosage: 10 ML ED
     Route: 008
  2. OXYCODON [Concomitant]

REACTIONS (2)
  - ANAESTHETIC COMPLICATION [None]
  - HYPOAESTHESIA [None]
